FAERS Safety Report 21715416 (Version 1)
Quarter: 2022Q4

REPORT INFORMATION
  Report Type: Spontaneous
  Country: US (occurrence: None)
  Receive Date: 20221209
  Receipt Date: 20221209
  Transmission Date: 20230113
  Serious: Yes (Other)
  Sender: FDA-Public Use
  Company Number: None

PATIENT
  Sex: Male
  Weight: 63 kg

DRUGS (1)
  1. VALIUM [Suspect]
     Active Substance: DIAZEPAM
     Indication: Anxiety
     Dosage: OTHER QUANTITY : 1 TABLET(S);?FREQUENCY : 3 TIMES A DAY;?

REACTIONS (9)
  - Withdrawal syndrome [None]
  - Dyspnoea [None]
  - Oropharyngeal pain [None]
  - Gastrointestinal disorder [None]
  - Cardiac disorder [None]
  - Electric shock sensation [None]
  - Pain [None]
  - Tinnitus [None]
  - Agoraphobia [None]
